FAERS Safety Report 6185320-5 (Version None)
Quarter: 2009Q2

REPORT INFORMATION
  Report Type: 
  Country: None (occurrence: None)
  Receive Date: 20090511
  Receipt Date: 20090501
  Transmission Date: 20091009
  Serious: Yes (Other)
  Sender: FDA-Public Use
  Company Number: GB-ROCHE-631491

PATIENT
  Sex: Female
  Weight: 123.8 kg

DRUGS (3)
  1. ORLISTAT [Suspect]
     Indication: OBESITY
     Route: 048
     Dates: start: 20081002
  2. METFORMIN HCL [Concomitant]
     Indication: POLYCYSTIC OVARIES
     Dosage: DOSE REPORTED AS 2000MG 2 TAKEN 2 X DAILY
     Route: 048
  3. CERAZETTE [Concomitant]
     Dosage: DRUG REPORTED AS CEREZETTE
     Route: 048

REACTIONS (1)
  - HYPOTHYROIDISM [None]
